FAERS Safety Report 10574522 (Version 2)
Quarter: 2015Q1

REPORT INFORMATION
  Report Type: Spontaneous
  Country: DE (occurrence: DE)
  Receive Date: 20141110
  Receipt Date: 20150121
  Transmission Date: 20150720
  Serious: Yes (Hospitalization)
  Sender: FDA-Public Use
  Company Number: DE-ELI_LILLY_AND_COMPANY-DE201410011051

PATIENT
  Sex: Male
  Weight: 96 kg

DRUGS (11)
  1. ZYPREXA [Suspect]
     Active Substance: OLANZAPINE
     Indication: MANIA
     Dosage: 20 MG, UNKNOWN
     Route: 048
     Dates: end: 20140922
  2. QUILONUM                           /00033702/ [Concomitant]
     Active Substance: LITHIUM CARBONATE
     Dosage: 125 MG, QD
     Route: 065
  3. VALPROAT [Concomitant]
     Active Substance: VALPROATE SODIUM
     Dosage: 1500 MG, UNKNOWN
     Route: 065
     Dates: start: 20140925
  4. VALPROAT [Concomitant]
     Active Substance: VALPROATE SODIUM
     Dosage: 800 MG, UNKNOWN
     Route: 065
  5. ZYPREXA [Suspect]
     Active Substance: OLANZAPINE
     Dosage: 5 MG, UNKNOWN
     Route: 048
     Dates: start: 20140925, end: 20140926
  6. ZYPREXA [Suspect]
     Active Substance: OLANZAPINE
     Indication: BIPOLAR DISORDER
     Dosage: 10 MG, UNKNOWN
     Route: 048
     Dates: start: 20140916
  7. ZYPREXA [Suspect]
     Active Substance: OLANZAPINE
     Dosage: 15 MG, UNKNOWN
     Route: 048
     Dates: start: 20140923, end: 20140923
  8. ZYPREXA [Suspect]
     Active Substance: OLANZAPINE
     Dosage: 10 MG, UNKNOWN
     Route: 048
     Dates: start: 20140924, end: 20140924
  9. VALPROAT [Concomitant]
     Active Substance: VALPROATE SODIUM
     Dosage: 500 MG, UNKNOWN
     Route: 065
     Dates: end: 20141009
  10. DIAZEPAM. [Concomitant]
     Active Substance: DIAZEPAM
     Dosage: 30 MG, QD
     Route: 065
  11. CLEXANE [Concomitant]
     Active Substance: ENOXAPARIN SODIUM
     Dosage: 40 MG, QD
     Route: 065

REACTIONS (5)
  - Fall [Recovered/Resolved]
  - Delirium [Recovered/Resolved]
  - Sleep disorder [Recovered/Resolved]
  - Blood glucose increased [Recovered/Resolved]
  - Micturition disorder [Recovered/Resolved]

NARRATIVE: CASE EVENT DATE: 20140919
